FAERS Safety Report 5527323-7 (Version None)
Quarter: 2007Q4

REPORT INFORMATION
  Report Type: 
  Country: None (occurrence: None)
  Receive Date: 20071128
  Receipt Date: 20071116
  Transmission Date: 20080405
  Serious: Yes (Other)
  Sender: FDA-Public Use
  Company Number: B0496015A

PATIENT
  Age: 59 Year
  Sex: Female

DRUGS (2)
  1. ZELITREX [Suspect]
     Indication: GENITAL HERPES
     Dosage: 1TAB PER DAY
     Route: 048
     Dates: start: 20070801
  2. MILLEPERTUIS [Concomitant]

REACTIONS (2)
  - HAEMATOMA [None]
  - THROMBOCYTOPENIA [None]
